FAERS Safety Report 20506292 (Version 2)
Quarter: 2022Q1

REPORT INFORMATION
  Report Type: Report from Study
  Country: US (occurrence: US)
  Receive Date: 20220223
  Receipt Date: 20220310
  Transmission Date: 20220423
  Serious: Yes (Death)
  Sender: FDA-Public Use
  Company Number: US-BIOGEN-2022BI01099719

PATIENT
  Sex: Female

DRUGS (1)
  1. TYSABRI [Suspect]
     Active Substance: NATALIZUMAB
     Indication: Multiple sclerosis
     Route: 065
     Dates: start: 20140905, end: 20211221

REACTIONS (1)
  - Death [Fatal]
